FAERS Safety Report 7229534-1 (Version None)
Quarter: 2011Q1

REPORT INFORMATION
  Report Type: 
  Country: None (occurrence: None)
  Receive Date: 20110117
  Receipt Date: 20100709
  Transmission Date: 20110831
  Serious: No
  Sender: FDA-Public Use
  Company Number: US-TYCO HEALTHCARE/MALLINCKRODT-T201001617

PATIENT
  Sex: Male
  Weight: 63.492 kg

DRUGS (3)
  1. OPTIRAY 350 [Suspect]
     Indication: COMPUTERISED TOMOGRAM
     Dosage: 100 ML, SINGLE
     Route: 042
     Dates: start: 20100706, end: 20100706
  2. BENADRYL [Concomitant]
     Indication: PREMEDICATION
     Dosage: UNK
     Dates: start: 20100706, end: 20100706
  3. PREDNISONE [Concomitant]
     Indication: PREMEDICATION
     Dosage: UNK
     Dates: start: 20100706, end: 20100706

REACTIONS (1)
  - RASH [None]
